FAERS Safety Report 15506869 (Version 3)
Quarter: 2019Q1

REPORT INFORMATION
  Report Type: Report from Study
  Country: US (occurrence: US)
  Receive Date: 20181016
  Receipt Date: 20190320
  Transmission Date: 20190417
  Serious: Yes (Other)
  Sender: FDA-Public Use
  Company Number: US-ALEXION PHARMACEUTICALS INC.-A201813434

PATIENT
  Sex: Male

DRUGS (1)
  1. SOLIRIS [Suspect]
     Active Substance: ECULIZUMAB
     Indication: PAROXYSMAL NOCTURNAL HAEMOGLOBINURIA
     Route: 065

REACTIONS (27)
  - Blood alkaline phosphatase increased [Unknown]
  - Ocular icterus [Unknown]
  - Fatigue [Unknown]
  - Urinary tract infection [Unknown]
  - Mean cell haemoglobin increased [Unknown]
  - Red blood cell count decreased [Unknown]
  - Haemolytic anaemia [Unknown]
  - Blood bilirubin increased [Unknown]
  - Red cell distribution width increased [Unknown]
  - Arthralgia [Unknown]
  - Monocyte count increased [Unknown]
  - Blood pressure increased [Unknown]
  - Haptoglobin decreased [Unknown]
  - Thrombocytopenia [Unknown]
  - Haemochromatosis [Unknown]
  - Blood urea nitrogen/creatinine ratio increased [Unknown]
  - Haematocrit decreased [Unknown]
  - Anaemia [Unknown]
  - Iron binding capacity total decreased [Unknown]
  - Haemoglobin decreased [Unknown]
  - Upper respiratory tract infection [Unknown]
  - Blood glucose increased [Unknown]
  - Platelet count decreased [Unknown]
  - Serum ferritin increased [Unknown]
  - Blood lactate dehydrogenase increased [Unknown]
  - Mean cell volume increased [Unknown]
  - Transferrin saturation increased [Unknown]

NARRATIVE: CASE EVENT DATE: 2013
